FAERS Safety Report 18438064 (Version 2)
Quarter: 2021Q1

REPORT INFORMATION
  Report Type: Spontaneous
  Country: US (occurrence: US)
  Receive Date: 20201029
  Receipt Date: 20210219
  Transmission Date: 20210419
  Serious: No
  Sender: FDA-Public Use
  Company Number: US-AKCEA THERAPEUTICS-2020IS001419

PATIENT
  Age: 63 Year
  Sex: Female

DRUGS (2)
  1. ISSD (INTEGRATED SYRINGE SAFETY DEVICE) [Suspect]
     Active Substance: DEVICE
  2. TEGSEDI [Suspect]
     Active Substance: INOTERSEN SODIUM
     Indication: HEREDITARY NEUROPATHIC AMYLOIDOSIS
     Route: 058

REACTIONS (13)
  - Urine abnormality [Unknown]
  - Urinary casts [Unknown]
  - Bacterial test positive [Unknown]
  - Crystal urine present [Unknown]
  - Urinary occult blood positive [Unknown]
  - Nitrite urine present [Not Recovered/Not Resolved]
  - Protein urine present [Unknown]
  - Alanine aminotransferase abnormal [Unknown]
  - Urinary sediment present [Unknown]
  - Urine ketone body present [Unknown]
  - Urine leukocyte esterase positive [Unknown]
  - Red blood cells urine positive [Unknown]
  - White blood cells urine positive [Unknown]

NARRATIVE: CASE EVENT DATE: 2020
